FAERS Safety Report 9521307 (Version 1)
Quarter: 2013Q1

REPORT INFORMATION
  Report Type: Spontaneous
  Country: US (occurrence: None)
  Receive Date: 20130305
  Receipt Date: 20130305
  Transmission Date: 20140127
  Serious: Yes (Hospitalization)
  Sender: FDA-Public Use
  Company Number: 163-21880-12022783

PATIENT
  Age: 65 Year
  Sex: Male
  Weight: 136.08 kg

DRUGS (6)
  1. REVLIMID [Suspect]
     Indication: PLASMA CELL MYELOMA
     Dosage: 25 MG, DAILY X 21 DAYS, 7 DAYS OFF, PO
     Route: 048
     Dates: start: 20120113
  2. TRAMADOL (TRAMADOL) (UNKNOWN) [Concomitant]
  3. ADVAIR (SERETIDE MITE) (UNKNOWN) [Concomitant]
  4. METFORMIN (METFORMIN) (UNKNOWN) [Concomitant]
  5. THYROID MEDICATION (THYROID PREPARATIONS) (UNKNOWN) [Concomitant]
  6. HYPERTENSION MEDICATION (ANTIHYPERTENSIVES) (UNKNOWN) [Concomitant]

REACTIONS (2)
  - Haemoglobin decreased [None]
  - Body temperature increased [None]
